FAERS Safety Report 13149620 (Version 3)
Quarter: 2018Q1

REPORT INFORMATION
  Report Type: Report from Study
  Country: US (occurrence: US)
  Receive Date: 20170124
  Receipt Date: 20180108
  Transmission Date: 20180508
  Serious: No
  Sender: FDA-Public Use
  Company Number: US-AMGEN-USASL2016183758

PATIENT
  Age: 57 Year
  Sex: Female

DRUGS (1)
  1. REPATHA [Suspect]
     Active Substance: EVOLOCUMAB
     Indication: PRODUCT USED FOR UNKNOWN INDICATION
     Dosage: 140 MG, Q2WK
     Route: 065

REACTIONS (11)
  - Condition aggravated [Unknown]
  - Gastrointestinal inflammation [Unknown]
  - Psoriasis [Unknown]
  - Bronchitis [Not Recovered/Not Resolved]
  - Gastritis [Unknown]
  - Inflammation [Unknown]
  - Nasopharyngitis [Unknown]
  - Oropharyngeal pain [Unknown]
  - Influenza like illness [Unknown]
  - Ventricular extrasystoles [Not Recovered/Not Resolved]
  - Cough [Unknown]
